FAERS Safety Report 6020927-7 (Version None)
Quarter: 2008Q4

REPORT INFORMATION
  Report Type: 
  Country: None (occurrence: None)
  Receive Date: 20081229
  Receipt Date: 20081219
  Transmission Date: 20090506
  Serious: Yes (Other)
  Sender: FDA-Public Use
  Company Number: GB-AMGEN-UK324815

PATIENT
  Sex: Female

DRUGS (3)
  1. ARANESP [Suspect]
     Indication: ANAEMIA
     Route: 065
  2. EPOETIN ALFA [Suspect]
     Route: 042
  3. ERYTHROPOIETIN HUMAN [Suspect]

REACTIONS (1)
  - DRUG INEFFECTIVE [None]
